FAERS Safety Report 23814206 (Version 1)
Quarter: 2024Q2

REPORT INFORMATION
  Report Type: Spontaneous
  Country: US (occurrence: US)
  Receive Date: 20240503
  Receipt Date: 20240503
  Transmission Date: 20240716
  Serious: Yes (Hospitalization)
  Sender: FDA-Public Use
  Company Number: US-MYLANLABS-2024M1039932

PATIENT
  Age: 62 Year
  Sex: Male

DRUGS (3)
  1. AMIODARONE [Suspect]
     Active Substance: AMIODARONE
     Indication: Ventricular tachycardia
     Dosage: UNK
     Route: 065
  2. LIDOCAINE [Suspect]
     Active Substance: LIDOCAINE
     Indication: Ventricular tachycardia
     Dosage: UNK,INFUSION
     Route: 065
  3. MILRINONE [Concomitant]
     Active Substance: MILRINONE
     Indication: Cardiac failure chronic
     Dosage: UNK
     Route: 065

REACTIONS (1)
  - Drug ineffective [Unknown]
